FAERS Safety Report 9060921 (Version 4)
Quarter: 2013Q2

REPORT INFORMATION
  Report Type: Report from Study
  Country: CA (occurrence: CA)
  Receive Date: 20130212
  Receipt Date: 20130507
  Transmission Date: 20140414
  Serious: Yes (Other)
  Sender: FDA-Public Use
  Company Number: PHHY2004CA005727

PATIENT
  Sex: Male

DRUGS (7)
  1. CLOZARIL [Suspect]
     Indication: SCHIZOPHRENIA
     Dosage: 200 MG, UNK
     Route: 048
     Dates: start: 19980503
  2. ATIVAN [Concomitant]
  3. DOCUSATE [Concomitant]
  4. CLONAZEPAM [Concomitant]
  5. OLANZAPINE [Concomitant]
  6. FOLIC [Concomitant]
  7. BENZTROPINE [Concomitant]

REACTIONS (8)
  - Lymphoma [Not Recovered/Not Resolved]
  - Back pain [Unknown]
  - Agranulocytosis [Not Recovered/Not Resolved]
  - Neutropenia [Not Recovered/Not Resolved]
  - White blood cell count decreased [Not Recovered/Not Resolved]
  - Psychosomatic disease [Recovered/Resolved]
  - Thrombocytopenia [Unknown]
  - Flank pain [Unknown]
